FAERS Safety Report 13170827 (Version 1)
Quarter: 2017Q1

REPORT INFORMATION
  Report Type: Spontaneous
  Country: US (occurrence: US)
  Receive Date: 20170201
  Receipt Date: 20170201
  Transmission Date: 20170428
  Serious: Yes (Hospitalization)
  Sender: FDA-Public Use
  Company Number: US-TEVA-696842USA

PATIENT
  Age: 76 Year
  Sex: Female
  Weight: 100.11 kg

DRUGS (43)
  1. ALLEGRA [Concomitant]
     Active Substance: FEXOFENADINE HYDROCHLORIDE
     Dates: start: 20090403
  2. ASPIRIN. [Concomitant]
     Active Substance: ASPIRIN
     Dates: start: 20151002
  3. KRILL OIL [Concomitant]
     Active Substance: DIETARY SUPPLEMENT
     Dates: start: 20151002
  4. NEXIUM [Concomitant]
     Active Substance: ESOMEPRAZOLE MAGNESIUM
     Indication: PROPHYLAXIS
     Dates: start: 20130420, end: 20140617
  5. ZOCOR [Concomitant]
     Active Substance: SIMVASTATIN
     Dates: start: 2008
  6. MACROGOL [Concomitant]
     Active Substance: POLYETHYLENE GLYCOLS
     Dates: start: 20101129
  7. BISACODYL. [Concomitant]
     Active Substance: BISACODYL
     Dates: start: 20151002
  8. CLOTRIMAZOLE. [Concomitant]
     Active Substance: CLOTRIMAZOLE
     Dates: start: 2011
  9. DILAUDID [Concomitant]
     Active Substance: HYDROMORPHONE HYDROCHLORIDE
     Dates: start: 20150925
  10. ALBUTEROL. [Concomitant]
     Active Substance: ALBUTEROL
     Dates: start: 1999
  11. SPIRIVA [Concomitant]
     Active Substance: TIOTROPIUM BROMIDE MONOHYDRATE
     Dates: start: 20090403
  12. CHLORTHALIDONE. [Concomitant]
     Active Substance: CHLORTHALIDONE
     Dates: start: 20151002
  13. VITAMIN C [Concomitant]
     Active Substance: ASCORBIC ACID
     Dates: start: 20090403
  14. WOMAN^S STOOL SOFTENER [Concomitant]
     Dates: start: 20101129
  15. SLOW-MAG [Concomitant]
     Active Substance: MAGNESIUM CHLORIDE
     Dates: start: 20150618
  16. ADVAIR HFA [Concomitant]
     Active Substance: FLUTICASONE PROPIONATE\SALMETEROL XINAFOATE
     Dates: start: 1999
  17. HYDROCHLOROTHIAZIDE. [Concomitant]
     Active Substance: HYDROCHLOROTHIAZIDE
     Dates: start: 1993
  18. OYSTER SHELL CALCIUM WITH VITAMIN D [Concomitant]
     Active Substance: CALCIUM\CHOLECALCIFEROL
     Dates: start: 20090403
  19. FERROUS SULFATE. [Concomitant]
     Active Substance: FERROUS SULFATE
     Dates: start: 20141216
  20. TYLENOL [Concomitant]
     Active Substance: ACETAMINOPHEN
     Dates: start: 20130718
  21. TYLENOL ARTHRITIS EX-STRENGTH [Concomitant]
     Dates: start: 20141001
  22. GLUCOSAMINE W/CHONDROITIN SULFATE [Concomitant]
     Active Substance: CHONDROITIN SULFATE (BOVINE)\GLUCOSAMINE SULFATE
     Dates: start: 20151002
  23. MYRBETRIQ [Concomitant]
     Active Substance: MIRABEGRON
     Dates: start: 20151002
  24. PREDNISONE. [Suspect]
     Active Substance: PREDNISONE
     Indication: TEMPORAL ARTERITIS
     Dosage: 12.5 MILLIGRAM DAILY;
     Route: 048
     Dates: start: 20150918
  25. BETA CAROTENE [Concomitant]
     Dates: start: 2007
  26. PROVENTIL [Concomitant]
     Active Substance: ALBUTEROL
     Dates: start: 20110830
  27. LEFLUNOMIDE. [Concomitant]
     Active Substance: LEFLUNOMIDE
     Dates: start: 20150318
  28. VITAMIN E [Concomitant]
     Active Substance: .ALPHA.-TOCOPHEROL
     Dates: start: 20100727
  29. LEVOCETIRIZINE [Concomitant]
     Active Substance: LEVOCETIRIZINE
     Dates: start: 20151002
  30. MYCELEX TROCHE [Concomitant]
     Dates: start: 20151002
  31. PREDNISONE. [Suspect]
     Active Substance: PREDNISONE
     Indication: RHEUMATOID ARTHRITIS
  32. IPRATROPIUM/ALBUTEROL [Concomitant]
     Active Substance: ALBUTEROL\IPRATROPIUM
     Dates: start: 2003
  33. METFORMIN [Concomitant]
     Active Substance: METFORMIN HYDROCHLORIDE
     Dates: start: 20140911
  34. JANUMET [Concomitant]
     Active Substance: METFORMIN HYDROCHLORIDE\SITAGLIPTIN PHOSPHATE
     Dates: start: 20130914
  35. IBUPROFEN. [Concomitant]
     Active Substance: IBUPROFEN
     Indication: OSTEOARTHRITIS
     Route: 048
     Dates: start: 20130420, end: 20140617
  36. VITAMIN B6 [Concomitant]
     Active Substance: PYRIDOXINE HYDROCHLORIDE
     Dates: start: 20090403
  37. FLUOXETINE [Concomitant]
     Active Substance: FLUOXETINE HYDROCHLORIDE
     Dates: start: 20151002
  38. IBUPROFEN. [Concomitant]
     Active Substance: IBUPROFEN
     Indication: RHEUMATOID ARTHRITIS
  39. TOPAMAX [Concomitant]
     Active Substance: TOPIRAMATE
     Indication: TEMPORAL ARTERITIS
     Dosage: 100 MILLIGRAM DAILY;
     Route: 048
     Dates: start: 20151002
  40. FISH OIL [Concomitant]
     Active Substance: FISH OIL
     Dates: start: 20130326
  41. GABAPENTIN. [Concomitant]
     Active Substance: GABAPENTIN
     Dates: start: 2010
  42. ATENOLOL. [Concomitant]
     Active Substance: ATENOLOL
     Dates: start: 2011
  43. LEVOTHYROXINE SODIUM. [Concomitant]
     Active Substance: LEVOTHYROXINE SODIUM
     Dates: start: 20150225

REACTIONS (2)
  - Condition aggravated [Recovered/Resolved]
  - Hypokalaemia [Recovered/Resolved]

NARRATIVE: CASE EVENT DATE: 20160121
